FAERS Safety Report 19811479 (Version 1)
Quarter: 2021Q3

REPORT INFORMATION
  Report Type: Spontaneous
  Country: IT (occurrence: IT)
  Receive Date: 20210910
  Receipt Date: 20210910
  Transmission Date: 20211014
  Serious: Yes (Other)
  Sender: FDA-Public Use
  Company Number: IT-SUN PHARMACEUTICAL INDUSTRIES LTD-2021RR-310532

PATIENT
  Age: 44 Year
  Sex: Male

DRUGS (8)
  1. TRAMADOL. [Suspect]
     Active Substance: TRAMADOL
     Indication: WITHDRAWAL SYNDROME
     Dosage: 50 MILLIGRAM, DAILY
     Route: 065
  2. SERTRALINE [Suspect]
     Active Substance: SERTRALINE HYDROCHLORIDE
     Indication: WITHDRAWAL SYNDROME
     Dosage: 200 MILLIGRAM, DAILY
     Route: 065
  3. BUPROPION. [Suspect]
     Active Substance: BUPROPION
     Indication: WITHDRAWAL SYNDROME
     Dosage: 150 MILLIGRAM, DAILY
     Route: 065
  4. BUPROPION. [Suspect]
     Active Substance: BUPROPION
     Dosage: 300 MILLIGRAM, DAILY
     Route: 065
  5. TRAZODONE [Suspect]
     Active Substance: TRAZODONE HYDROCHLORIDE
     Indication: WITHDRAWAL SYNDROME
     Dosage: 300 MILLIGRAM, DAILY
     Route: 065
  6. PREGABALIN. [Suspect]
     Active Substance: PREGABALIN
     Indication: WITHDRAWAL SYNDROME
     Dosage: 25 MILLIGRAM, BID
     Route: 065
  7. PAROXETINE. [Suspect]
     Active Substance: PAROXETINE
     Indication: WITHDRAWAL SYNDROME
     Dosage: 40 MILLIGRAM, DAILY
     Route: 065
  8. PREGABALIN. [Suspect]
     Active Substance: PREGABALIN
     Dosage: 75 MILLIGRAM, BID
     Route: 065

REACTIONS (2)
  - Drug ineffective [Unknown]
  - Therapeutic product effect incomplete [Unknown]
